FAERS Safety Report 20470052 (Version 1)
Quarter: 2022Q1

REPORT INFORMATION
  Report Type: Spontaneous
  Country: US (occurrence: US)
  Receive Date: 20220214
  Receipt Date: 20220214
  Transmission Date: 20220423
  Serious: No
  Sender: FDA-Public Use
  Company Number: US-MYLANLABS-2022M1004506

PATIENT
  Sex: Male

DRUGS (2)
  1. MUSE [Suspect]
     Active Substance: ALPROSTADIL
     Indication: Product used for unknown indication
     Dosage: 500 MICROGRAM
  2. MUSE [Suspect]
     Active Substance: ALPROSTADIL
     Dosage: 1000 MICROGRAM

REACTIONS (1)
  - Drug ineffective [Unknown]
